FAERS Safety Report 4905130-3 (Version None)
Quarter: 2006Q1

REPORT INFORMATION
  Report Type: 
  Country: None (occurrence: None)
  Receive Date: 20060208
  Receipt Date: 20051118
  Transmission Date: 20060701
  Serious: No
  Sender: FDA-Public Use
  Company Number: US-GLAXOSMITHKLINE-A0582870A

PATIENT
  Age: 55 Year
  Sex: Male

DRUGS (2)
  1. PAROXETINE HCL [Suspect]
     Indication: DEPRESSION
     Dosage: 20MG PER DAY
     Route: 048
     Dates: start: 20050607, end: 20050101
  2. NO CONCURRENT MEDICATION [Concomitant]

REACTIONS (3)
  - BEDRIDDEN [None]
  - DEPRESSION [None]
  - THINKING ABNORMAL [None]
